FAERS Safety Report 4599823-8 (Version None)
Quarter: 2005Q1

REPORT INFORMATION
  Report Type: 
  Country: None (occurrence: None)
  Receive Date: 20050303
  Receipt Date: 20050216
  Transmission Date: 20050727
  Serious: Yes (Other)
  Sender: FDA-Public Use
  Company Number: DSA_25904_2005

PATIENT
  Sex: Male

DRUGS (3)
  1. ATIVAN [Suspect]
     Dosage: DF PO
     Route: 048
  2. MIRTAZAPINE [Concomitant]
  3. OLANZAPINE [Concomitant]

REACTIONS (1)
  - NEUTROPHILIA [None]
